FAERS Safety Report 21854523 (Version 9)
Quarter: 2023Q1

REPORT INFORMATION
  Report Type: Report from Study
  Country: CN (occurrence: CN)
  Receive Date: 20230112
  Receipt Date: 20230315
  Transmission Date: 20230418
  Serious: Yes (Hospitalization)
  Sender: FDA-Public Use
  Company Number: CN-JNJFOC-20221204743

PATIENT
  Age: 60 Year
  Sex: Female
  Weight: 51.5 kg

DRUGS (30)
  1. TECLISTAMAB [Suspect]
     Active Substance: TECLISTAMAB
     Indication: Plasma cell myeloma
     Dosage: C1D2 - DOSE REPORTED ALSO AS 1.6 ML
     Route: 058
     Dates: start: 20221119, end: 20221119
  2. TECLISTAMAB [Suspect]
     Active Substance: TECLISTAMAB
     Dosage: C1D4
     Route: 058
     Dates: start: 20221122, end: 20221122
  3. TECLISTAMAB [Suspect]
     Active Substance: TECLISTAMAB
     Dosage: C1D8
     Route: 058
     Dates: start: 20221125, end: 20221217
  4. TECLISTAMAB [Suspect]
     Active Substance: TECLISTAMAB
     Dosage: C1D15
     Route: 058
     Dates: start: 20221202, end: 20221202
  5. TECLISTAMAB [Suspect]
     Active Substance: TECLISTAMAB
     Dosage: C1D22
     Route: 058
     Dates: start: 20221209, end: 20221209
  6. TECLISTAMAB [Suspect]
     Active Substance: TECLISTAMAB
     Dosage: 0.92 ML
     Route: 058
     Dates: start: 20221217, end: 20221217
  7. TECLISTAMAB [Suspect]
     Active Substance: TECLISTAMAB
     Dosage: WITH THE MOST RECENT DOSE REPORTED ON 17-DEC-2022
     Route: 058
     Dates: start: 20221125
  8. TECLISTAMAB [Suspect]
     Active Substance: TECLISTAMAB
     Route: 058
     Dates: start: 20221119, end: 20221122
  9. TECLISTAMAB [Suspect]
     Active Substance: TECLISTAMAB
     Dosage: C3D1
     Route: 058
     Dates: start: 20230214
  10. TECLISTAMAB [Suspect]
     Active Substance: TECLISTAMAB
     Dosage: C3D1
     Route: 058
     Dates: start: 20230215
  11. TECLISTAMAB [Suspect]
     Active Substance: TECLISTAMAB
     Dosage: C3D8
     Route: 058
     Dates: start: 20230221
  12. DARATUMUMAB [Suspect]
     Active Substance: DARATUMUMAB
     Indication: Plasma cell myeloma
     Dosage: DOSE ALSO REPORTED AS 1800 MG (C1D1)
     Route: 058
     Dates: start: 20221118
  13. DARATUMUMAB [Suspect]
     Active Substance: DARATUMUMAB
     Dosage: 1800 MG, C1D15
     Route: 058
     Dates: start: 20221202, end: 20221202
  14. DARATUMUMAB [Suspect]
     Active Substance: DARATUMUMAB
     Dosage: 1800 MG, C1D22
     Route: 058
     Dates: start: 20221209, end: 20221209
  15. DARATUMUMAB [Suspect]
     Active Substance: DARATUMUMAB
     Dosage: 1800 MG
     Route: 058
     Dates: start: 20221217, end: 20221217
  16. DARATUMUMAB [Suspect]
     Active Substance: DARATUMUMAB
     Dosage: 1800 MG, C3D1
     Route: 058
     Dates: start: 20230214
  17. ACYCLOVIR [Concomitant]
     Active Substance: ACYCLOVIR
     Indication: Antiviral prophylaxis
     Route: 048
     Dates: start: 20210610
  18. VITAMIN B1 [Concomitant]
     Active Substance: THIAMINE HYDROCHLORIDE
     Indication: Prophylaxis
     Route: 048
     Dates: start: 20211230
  19. VITAMIN B1 [Concomitant]
     Active Substance: THIAMINE HYDROCHLORIDE
     Route: 048
     Dates: start: 202112
  20. METHYLCOBALAMIN [Concomitant]
     Active Substance: METHYLCOBALAMIN
     Indication: Prophylaxis
     Route: 048
     Dates: start: 20210601
  21. OMEPRAZOLE [Concomitant]
     Active Substance: OMEPRAZOLE
     Indication: Prophylaxis
     Route: 048
     Dates: start: 20221112
  22. OMEPRAZOLE [Concomitant]
     Active Substance: OMEPRAZOLE
     Indication: Pyrexia
     Route: 048
     Dates: start: 20221219, end: 20221219
  23. OMEPRAZOLE [Concomitant]
     Active Substance: OMEPRAZOLE
     Route: 048
     Dates: start: 20230201, end: 20230211
  24. ENTECAVIR [Concomitant]
     Active Substance: ENTECAVIR
     Indication: Antiviral prophylaxis
     Route: 048
     Dates: start: 20221201, end: 20230105
  25. ENTECAVIR [Concomitant]
     Active Substance: ENTECAVIR
     Route: 048
     Dates: start: 20230215
  26. SHEN FU KANG [AGASTACHE RUGOSA HERB;IMPERATA CYLINDRICA RHIZOME;LEONUR [Concomitant]
     Indication: Blood creatinine increased
     Route: 048
     Dates: start: 20221112, end: 20230201
  27. GRANULOCYTE COLONY-STIMULATING FACTOR NOS [Concomitant]
     Active Substance: GRANULOCYTE COLONY-STIMULATING FACTOR NOS
     Indication: Neutrophil count decreased
     Route: 058
     Dates: start: 20230129, end: 20230129
  28. LANSOPRAZOLE [Concomitant]
     Active Substance: LANSOPRAZOLE
     Indication: Gastrointestinal disorder therapy
     Route: 048
     Dates: start: 20230116, end: 20230201
  29. HERBALS [Concomitant]
     Active Substance: HERBALS
     Indication: Gastrointestinal disorder therapy
     Route: 048
     Dates: start: 20230202
  30. HERBALS [Concomitant]
     Active Substance: HERBALS
     Indication: Prophylaxis

REACTIONS (5)
  - Interstitial lung disease [Recovered/Resolved]
  - COVID-19 pneumonia [Recovered/Resolved]
  - Pneumonia [Not Recovered/Not Resolved]
  - Pyrexia [Recovered/Resolved]
  - Electrocardiogram QT prolonged [Recovered/Resolved]

NARRATIVE: CASE EVENT DATE: 20221202
